FAERS Safety Report 4268566-2 (Version None)
Quarter: 2004Q1

REPORT INFORMATION
  Report Type: 
  Country: None (occurrence: None)
  Receive Date: 20040112
  Receipt Date: 20031209
  Transmission Date: 20041129
  Serious: Yes (Life-Threatening, Other)
  Sender: FDA-Public Use
  Company Number: PHFR2003GB04692

PATIENT
  Age: 86 Year
  Sex: Male

DRUGS (6)
  1. DESFERRIOXAMINE MESYLATE [Suspect]
     Indication: HAEMOSIDEROSIS
     Dosage: 500MG/DAY
     Route: 058
     Dates: start: 20030730, end: 20030730
  2. DESFERRIOXAMINE MESYLATE [Suspect]
     Dates: start: 20031110, end: 20031111
  3. GLICLAZIDE [Concomitant]
     Indication: DIABETES MELLITUS INSULIN-DEPENDENT
     Dosage: 80MG/DAY
     Route: 048
  4. NICORANDIL [Concomitant]
  5. BUMETANIDE [Concomitant]
  6. OMEPRAZOLE [Concomitant]

REACTIONS (2)
  - BLOOD GLUCOSE DECREASED [None]
  - MALAISE [None]
